FAERS Safety Report 8318226-3 (Version None)
Quarter: 2012Q2

REPORT INFORMATION
  Report Type: 
  Country: None (occurrence: None)
  Receive Date: 20120427
  Receipt Date: 20120419
  Transmission Date: 20120825
  Serious: Yes (Disabling, Other)
  Sender: FDA-Public Use
  Company Number: AR-GENZYME-RENA-1001473

PATIENT

DRUGS (5)
  1. ENALAPRIL MALEATE [Concomitant]
     Indication: PRODUCT USED FOR UNKNOWN INDICATION
     Dosage: 10 MG, QD
     Route: 065
  2. CARVEDILOL [Concomitant]
     Indication: PRODUCT USED FOR UNKNOWN INDICATION
     Dosage: 6.25 MG, QD
     Route: 065
  3. ALPRAZOLAM [Concomitant]
     Indication: PRODUCT USED FOR UNKNOWN INDICATION
     Dosage: 1 MG, QD
     Route: 065
  4. RENVELA [Suspect]
     Indication: HYPERPHOSPHATAEMIA
     Dosage: 1.6 G, 3X/W
     Route: 048
     Dates: start: 20110901, end: 20111001
  5. HECTOROL [Suspect]
     Indication: HYPERPARATHYROIDISM SECONDARY
     Dosage: 7.5 MG, 3X/W
     Route: 048
     Dates: start: 20110901, end: 20111001

REACTIONS (8)
  - LIGAMENT RUPTURE [None]
  - FALL [None]
  - MUSCLE RUPTURE [None]
  - ASTHENIA [None]
  - FATIGUE [None]
  - CONDITION AGGRAVATED [None]
  - TENDON RUPTURE [None]
  - MALAISE [None]
